FAERS Safety Report 14454456 (Version 10)
Quarter: 2021Q1

REPORT INFORMATION
  Report Type: Not Available
  Country: GB (occurrence: FR)
  Receive Date: 20180129
  Receipt Date: 20210305
  Transmission Date: 20210419
  Serious: Yes (Death, Hospitalization, Other)
  Sender: FDA-Public Use
  Company Number: FR-FRESENIUS KABI-FK201801014

PATIENT
  Age: 71 Year
  Sex: Male
  Weight: 113.4 kg

DRUGS (51)
  1. ULTRAVIST [Suspect]
     Active Substance: IOPROMIDE
     Indication: CHEST SCAN
     Dosage: 370 MG, UNK
     Route: 042
     Dates: start: 20170116, end: 20170116
  2. RACECADOTRIL [Suspect]
     Active Substance: RACECADOTRIL
     Indication: CHEST SCAN
     Dosage: 100 MG TID (1 DF)
     Route: 048
     Dates: start: 20161209, end: 20170119
  3. LINEZOLID. [Suspect]
     Active Substance: LINEZOLID
     Indication: SKIN INFECTION
  4. LEVOFLOXACIN. [Concomitant]
     Active Substance: LEVOFLOXACIN
     Dosage: UNK
  5. LINEZOLID (MANUFACTURER UNKNOWN) [Suspect]
     Active Substance: LINEZOLID
     Indication: SKIN INFECTION
     Dosage: 600 MG, BID
     Route: 048
     Dates: start: 20161222, end: 20170110
  6. METOCLOPRAMIDE HYDROCHLORIDE. [Suspect]
     Active Substance: METOCLOPRAMIDE HYDROCHLORIDE
     Indication: SKIN INFECTION
     Dosage: 30 MG, 1X/DAY
     Route: 048
  7. COLESTYRAMINE [Suspect]
     Active Substance: CHOLESTYRAMINE
     Indication: SKIN INFECTION
  8. LINEZOLID. [Suspect]
     Active Substance: LINEZOLID
     Indication: CHEST SCAN
     Dosage: 600 MG, BID
     Route: 048
     Dates: start: 20161222, end: 20170110
  9. UMULINE ZINC COMPOSE [Concomitant]
     Active Substance: INSULIN HUMAN
     Indication: PRODUCT USED FOR UNKNOWN INDICATION
     Dosage: INSULIN HUMAN ZINC SUSPENSION (AMORPHOUS)
     Route: 065
  10. QUESTRAN [Suspect]
     Active Substance: CHOLESTYRAMINE
     Indication: CHEST SCAN
     Dosage: 4 G, 1X/DAY
     Route: 048
     Dates: start: 20161216, end: 20170119
  11. PANTOPRAZOLE [Suspect]
     Active Substance: PANTOPRAZOLE
     Indication: SKIN INFECTION
  12. COLESTYRAMINE [Suspect]
     Active Substance: CHOLESTYRAMINE
     Indication: CHEST SCAN
     Dosage: UNK
  13. POLARAMINE [Concomitant]
     Active Substance: DEXCHLORPHENIRAMINE MALEATE
     Indication: PRODUCT USED FOR UNKNOWN INDICATION
     Dosage: UNK
     Route: 065
  14. PIPERACILLIN/TAZOBACTAM (MANUFACTURER UNKNOWN) [Suspect]
     Active Substance: PIPERACILLIN SODIUM\TAZOBACTAM SODIUM
     Indication: CHEST SCAN
  15. PRIMPERAN [Suspect]
     Active Substance: METOCLOPRAMIDE HYDROCHLORIDE
     Indication: SKIN INFECTION
     Dosage: 10 MG, TID (3 DF, TID (1 DF TID))
     Route: 048
     Dates: start: 20161224, end: 20170119
  16. PRIMPERAN [Suspect]
     Active Substance: METOCLOPRAMIDE HYDROCHLORIDE
     Indication: CHEST SCAN
  17. ULTRAVIST [Suspect]
     Active Substance: IOPROMIDE
     Indication: SKIN INFECTION
  18. RACECADOTRIL [Suspect]
     Active Substance: RACECADOTRIL
     Indication: SKIN INFECTION
  19. LANTUS [Concomitant]
     Active Substance: INSULIN GLARGINE
     Indication: PRODUCT USED FOR UNKNOWN INDICATION
     Dosage: UNK
     Route: 065
  20. DIFFU?K [Concomitant]
     Active Substance: POTASSIUM CHLORIDE
     Indication: PRODUCT USED FOR UNKNOWN INDICATION
     Dosage: UNK
     Route: 065
  21. LOVENOX [Concomitant]
     Active Substance: ENOXAPARIN SODIUM
     Indication: PRODUCT USED FOR UNKNOWN INDICATION
     Dosage: UNKNOWN
     Route: 065
     Dates: start: 20170114
  22. PIPERACILLIN/TAZOBACTAM (MANUFACTURER UNKNOWN) [Suspect]
     Active Substance: PIPERACILLIN SODIUM\TAZOBACTAM SODIUM
     Indication: SKIN INFECTION
     Dosage: 1 DF, 3X/DAY
     Route: 042
     Dates: start: 20161204, end: 20170130
  23. TRAMADOL HYDROCHLORIDE, PARACETAMOL [Suspect]
     Active Substance: ACETAMINOPHEN\TRAMADOL HYDROCHLORIDE
     Indication: SKIN INFECTION
  24. CUBICIN [Suspect]
     Active Substance: DAPTOMYCIN
     Indication: SKIN INFECTION
  25. RIFADIN [Suspect]
     Active Substance: RIFAMPIN
     Indication: CHEST SCAN
     Dosage: UNK
     Route: 065
  26. QUESTRAN [Suspect]
     Active Substance: CHOLESTYRAMINE
     Indication: SKIN INFECTION
     Dosage: 4 G, QD
     Route: 048
     Dates: start: 20161216, end: 20170119
  27. NEFOPAM [Suspect]
     Active Substance: NEFOPAM
     Indication: SKIN INFECTION
  28. RIFAMPICIN [Suspect]
     Active Substance: RIFAMPIN
     Indication: CHEST SCAN
  29. RIFAMPICIN [Suspect]
     Active Substance: RIFAMPIN
     Indication: SKIN INFECTION
  30. DUPHALAC /01526201/ [Concomitant]
     Indication: PRODUCT USED FOR UNKNOWN INDICATION
     Dosage: UNK
     Route: 065
  31. KARDEGIC [Concomitant]
     Active Substance: ASPIRIN DL-LYSINE
     Indication: PRODUCT USED FOR UNKNOWN INDICATION
     Dosage: UNK
     Route: 065
  32. VANCOMYCIN (MANUFACTURER UNKNOWN) [Suspect]
     Active Substance: VANCOMYCIN
     Indication: CHEST SCAN
     Dosage: UNK
     Route: 065
  33. PANTOPRAZOLE [Suspect]
     Active Substance: PANTOPRAZOLE
     Indication: CHEST SCAN
     Dosage: UNKNOWN
     Route: 042
     Dates: start: 20161225, end: 20170119
  34. TRAMADOL HYDROCHLORIDE, PARACETAMOL [Suspect]
     Active Substance: ACETAMINOPHEN\TRAMADOL HYDROCHLORIDE
     Indication: CHEST SCAN
     Dosage: 8 DF, QD
     Route: 048
     Dates: start: 20161201, end: 20170119
  35. SIMBICORT TURBUHALER [Suspect]
     Active Substance: BUDESONIDE\FORMOTEROL FUMARATE
     Indication: PRODUCT USED FOR UNKNOWN INDICATION
     Dosage: 1 DF, QD
     Route: 055
     Dates: start: 20161220, end: 20170119
  36. NEFOPAM [Suspect]
     Active Substance: NEFOPAM
     Indication: CHEST SCAN
     Dosage: UNK
     Route: 042
     Dates: start: 20161202, end: 20170119
  37. UMULINE ZINC COMPOSE [Concomitant]
     Active Substance: INSULIN HUMAN
     Indication: PRODUCT USED FOR UNKNOWN INDICATION
     Dosage: UNK
     Route: 065
  38. LOPERAMIDE [Concomitant]
     Active Substance: LOPERAMIDE
     Indication: PRODUCT USED FOR UNKNOWN INDICATION
     Dosage: UNK
     Route: 065
  39. DIFFU?K [Concomitant]
     Active Substance: POTASSIUM CHLORIDE
     Indication: PRODUCT USED FOR UNKNOWN INDICATION
     Dosage: UNKNOWN
     Route: 065
  40. LOVENOX [Concomitant]
     Active Substance: ENOXAPARIN SODIUM
     Indication: PRODUCT USED FOR UNKNOWN INDICATION
     Dosage: UNKNOWN
     Route: 065
  41. POTASSIUM CHLORIDE. [Concomitant]
     Active Substance: POTASSIUM CHLORIDE
     Dosage: UNK
  42. VANCOMYCIN (MANUFACTURER UNKNOWN) [Suspect]
     Active Substance: VANCOMYCIN
     Indication: SKIN INFECTION
  43. LINEZOLID (MANUFACTURER UNKNOWN) [Suspect]
     Active Substance: LINEZOLID
     Indication: CHEST SCAN
  44. CUBICIN [Suspect]
     Active Substance: DAPTOMYCIN
     Indication: CHEST SCAN
     Dosage: 800 MG, QD
     Route: 042
     Dates: start: 20170110, end: 20170201
  45. RIFADIN [Suspect]
     Active Substance: RIFAMPIN
     Indication: SKIN INFECTION
  46. DAPTOMYCIN. [Suspect]
     Active Substance: DAPTOMYCIN
     Indication: CHEST SCAN
     Dosage: 800 MG, 1X/DAY
     Route: 042
     Dates: start: 20170110
  47. DAPTOMYCIN. [Suspect]
     Active Substance: DAPTOMYCIN
     Indication: SKIN INFECTION
     Dosage: 800 MG, 1X/DAY
     Route: 042
     Dates: start: 20170110, end: 20170201
  48. METOCLOPRAMIDE HYDROCHLORIDE. [Suspect]
     Active Substance: METOCLOPRAMIDE HYDROCHLORIDE
     Indication: CHEST SCAN
  49. FUROSEMIDE. [Concomitant]
     Active Substance: FUROSEMIDE
     Indication: PRODUCT USED FOR UNKNOWN INDICATION
     Dosage: UNK
     Route: 065
  50. GALACTOSE, LACTOSE, LACTULOSE [Concomitant]
     Indication: PRODUCT USED FOR UNKNOWN INDICATION
     Dosage: UNKNOWN
     Route: 065
  51. INSULIN HUMAN [Concomitant]
     Active Substance: INSULIN HUMAN
     Dosage: UNK

REACTIONS (18)
  - Sepsis [Fatal]
  - Dyspnoea [Fatal]
  - Restlessness [Fatal]
  - Death [Fatal]
  - Diffuse alveolar damage [Fatal]
  - Pulmonary interstitial emphysema syndrome [Fatal]
  - Glomerular filtration rate decreased [Fatal]
  - Alveolar lung disease [Fatal]
  - Eosinophilia [Fatal]
  - Eczema [Fatal]
  - Hepatic encephalopathy [Fatal]
  - Eosinophilic pneumonia [Fatal]
  - Generalised oedema [Fatal]
  - Acute kidney injury [Fatal]
  - Rash maculo-papular [Fatal]
  - Hyperammonaemia [Fatal]
  - Rectal haemorrhage [Fatal]
  - Thrombocytopenia [Fatal]

NARRATIVE: CASE EVENT DATE: 20161227
